FAERS Safety Report 5413182-X (Version None)
Quarter: 2007Q3

REPORT INFORMATION
  Report Type: 
  Country: None (occurrence: None)
  Receive Date: 20070716
  Receipt Date: 20070521
  Transmission Date: 20080115
  Serious: No
  Sender: FDA-Public Use
  Company Number: 2007US001120

PATIENT
  Age: 45 Year
  Sex: Male
  Weight: 166 kg

DRUGS (1)
  1. MYCAMINE [Suspect]
     Indication: FUNGAL INFECTION

REACTIONS (1)
  - DRUG EFFECT DECREASED [None]
